FAERS Safety Report 9647972 (Version 3)
Quarter: 2014Q1

REPORT INFORMATION
  Report Type: Spontaneous
  Country: US (occurrence: US)
  Receive Date: 20131028
  Receipt Date: 20140124
  Transmission Date: 20141002
  Serious: No
  Sender: FDA-Public Use
  Company Number: US-PFIZER INC-2013306339

PATIENT
  Age: 76 Year
  Sex: Female

DRUGS (1)
  1. CELEBREX [Suspect]
     Dosage: 200MG UNKNOWN FREQUENCY

REACTIONS (3)
  - Reaction to drug excipients [Recovered/Resolved]
  - Rash generalised [Recovered/Resolved]
  - Pruritus [Recovered/Resolved]
